FAERS Safety Report 6450679-8 (Version None)
Quarter: 2009Q4

REPORT INFORMATION
  Report Type: 
  Country: None (occurrence: None)
  Receive Date: 20091123
  Receipt Date: 20091110
  Transmission Date: 20100525
  Serious: Yes (Hospitalization)
  Sender: FDA-Public Use
  Company Number: ES-ELI_LILLY_AND_COMPANY-ES200911003365

PATIENT
  Sex: Female

DRUGS (7)
  1. FORTEO [Suspect]
     Indication: OSTEOPOROSIS
     Dosage: 20 UG, UNKNOWN
     Dates: start: 20090601, end: 20091023
  2. NITROPLAST [Concomitant]
     Dosage: UNK, UNKNOWN
     Route: 065
  3. AMERIDE [Concomitant]
     Dosage: UNK, UNKNOWN
     Route: 065
  4. PREDNISONE [Concomitant]
     Dosage: UNK, UNKNOWN
     Route: 065
  5. SIMVASTATINA [Concomitant]
     Dosage: UNK, UNKNOWN
     Route: 065
  6. DILTIAZEM [Concomitant]
     Dates: end: 20090101
  7. CALCIUM [Concomitant]
     Dates: end: 20090101

REACTIONS (2)
  - HEART RATE DECREASED [None]
  - HYPERCALCAEMIA [None]
